FAERS Safety Report 13275193 (Version 2)
Quarter: 2017Q1

REPORT INFORMATION
  Report Type: Spontaneous
  Country: FI (occurrence: FI)
  Receive Date: 20170227
  Receipt Date: 20170228
  Transmission Date: 20170428
  Serious: Yes (Life-Threatening)
  Sender: FDA-Public Use
  Company Number: PHHY2017FI025031

PATIENT
  Age: 52 Year
  Sex: Male

DRUGS (3)
  1. CEFUROXIME. [Suspect]
     Active Substance: CEFUROXIME
     Indication: PRODUCT USED FOR UNKNOWN INDICATION
     Route: 065
  2. CLOXACILLIN [Suspect]
     Active Substance: CLOXACILLIN
     Indication: PRODUCT USED FOR UNKNOWN INDICATION
     Route: 065
  3. LEVOFLOXACIN. [Suspect]
     Active Substance: LEVOFLOXACIN
     Indication: PRODUCT USED FOR UNKNOWN INDICATION
     Route: 065

REACTIONS (11)
  - Hyperaemia [Unknown]
  - Dyspnoea [Unknown]
  - Infection [Unknown]
  - Condition aggravated [Unknown]
  - Influenza [Unknown]
  - Arthritis [Unknown]
  - Inflammation [Unknown]
  - Pyrexia [Unknown]
  - Angiopathy [Unknown]
  - Oxygen saturation abnormal [Unknown]
  - Pyelonephritis [Unknown]
